FAERS Safety Report 7301272-6 (Version None)
Quarter: 2011Q1

REPORT INFORMATION
  Report Type: 
  Country: None (occurrence: None)
  Receive Date: 20110112
  Receipt Date: 20090923
  Transmission Date: 20110831
  Serious: Yes (Death)
  Sender: FDA-Public Use
  Company Number: THYM-1001217

PATIENT
  Age: 14 Month
  Sex: Female

DRUGS (3)
  1. STEROIDS (STEROIDS) [Concomitant]
  2. THYMOGLOBULIN [Suspect]
     Indication: INTESTINAL TRANSPLANT
     Dosage: 3 MG/KG, INTRAVENOUS, 2 MG/KG, INTRAVENOUS
     Route: 042
  3. TACROLIMUS [Suspect]
     Indication: IMMUNOSUPPRESSION

REACTIONS (1)
  - EPSTEIN-BARR VIRUS ASSOCIATED LYMPHOPROLIFERATIVE DISORDER [None]
